FAERS Safety Report 15196722 (Version 2)
Quarter: 2018Q3

REPORT INFORMATION
  Report Type: Spontaneous
  Country: US (occurrence: US)
  Receive Date: 20180725
  Receipt Date: 20180824
  Transmission Date: 20181010
  Serious: Yes (Other)
  Sender: FDA-Public Use
  Company Number: US-BAYER-2018-134868

PATIENT

DRUGS (1)
  1. MAGNEVIST [Suspect]
     Active Substance: GADOPENTETATE DIMEGLUMINE
     Dosage: UNK

REACTIONS (28)
  - Injection site swelling [None]
  - Nausea [None]
  - Malaise [None]
  - Skin exfoliation [None]
  - Injection site inflammation [None]
  - Musculoskeletal stiffness [None]
  - Asthenia [None]
  - Muscle spasms [None]
  - Joint noise [None]
  - Rash [None]
  - Thrombophlebitis [None]
  - Emotional distress [None]
  - Cognitive disorder [None]
  - Erythema [None]
  - Anhedonia [None]
  - Vomiting [None]
  - Insomnia [None]
  - Skin fibrosis [None]
  - Pain [None]
  - Skin discomfort [None]
  - Fibrosis [None]
  - Mobility decreased [None]
  - Anxiety [None]
  - Gadolinium deposition disease [None]
  - Paraesthesia [None]
  - Gait disturbance [None]
  - Headache [None]
  - Skin discolouration [None]
